FAERS Safety Report 24815277 (Version 1)
Quarter: 2025Q1

REPORT INFORMATION
  Report Type: Spontaneous
  Country: US (occurrence: US)
  Receive Date: 20250107
  Receipt Date: 20250107
  Transmission Date: 20250409
  Serious: No
  Sender: DR REDDYS
  Company Number: US-DRL-USA-USA/2025/01/000112

PATIENT
  Age: 50 Year
  Sex: Female

DRUGS (2)
  1. ACCUTANE [Suspect]
     Active Substance: ISOTRETINOIN
     Indication: Product used for unknown indication
     Route: 065
  2. ACCUTANE [Suspect]
     Active Substance: ISOTRETINOIN
     Route: 065

REACTIONS (5)
  - Arthralgia [Recovering/Resolving]
  - Myalgia [Recovering/Resolving]
  - Lip dry [Recovering/Resolving]
  - Acne [Unknown]
  - Rash [Recovering/Resolving]
